FAERS Safety Report 7135507-X (Version None)
Quarter: 2010Q4

REPORT INFORMATION
  Report Type: 
  Country: None (occurrence: None)
  Receive Date: 20101203
  Receipt Date: 20101122
  Transmission Date: 20110411
  Serious: Yes (Hospitalization, Other)
  Sender: FDA-Public Use
  Company Number: US-ELI_LILLY_AND_COMPANY-US201009004556

PATIENT
  Sex: Female

DRUGS (1)
  1. FORTEO [Suspect]
     Dosage: UNK, UNKNOWN
     Route: 065
     Dates: end: 20100801

REACTIONS (4)
  - DIVERTICULITIS [None]
  - LARGE INTESTINE PERFORATION [None]
  - MYASTHENIA GRAVIS CRISIS [None]
  - URTICARIA [None]
